FAERS Safety Report 9987943 (Version 1)
Quarter: 2014Q1

REPORT INFORMATION
  Report Type: Spontaneous
  Country: US (occurrence: US)
  Receive Date: 20140307
  Receipt Date: 20140307
  Transmission Date: 20141002
  Serious: Yes (Other)
  Sender: FDA-Public Use
  Company Number: US-PFIZER INC-2014065288

PATIENT
  Age: 34 Year
  Sex: Female
  Weight: 69.84 kg

DRUGS (1)
  1. RELPAX [Suspect]
     Indication: MIGRAINE
     Dosage: 40 MG, AS NEEDED
     Dates: start: 201308

REACTIONS (2)
  - Intervertebral disc protrusion [Unknown]
  - Drug ineffective [Unknown]
